FAERS Safety Report 13233516 (Version 1)
Quarter: 2017Q1

REPORT INFORMATION
  Report Type: Spontaneous
  Country: CA (occurrence: CA)
  Receive Date: 20170215
  Receipt Date: 20170215
  Transmission Date: 20170428
  Serious: Yes (Hospitalization)
  Sender: FDA-Public Use
  Company Number: CA-TEVA-739156ACC

PATIENT
  Age: 75 Year
  Sex: Male
  Weight: 90.8 kg

DRUGS (3)
  1. ACT MOXIFLOXACIN [Suspect]
     Active Substance: MOXIFLOXACIN
     Indication: HORDEOLUM
     Dosage: 1 DROPS
     Route: 047
  2. ACT MOXIFLOXACIN [Interacting]
     Active Substance: MOXIFLOXACIN
     Indication: EYE INFECTION
  3. WARFARIN [Concomitant]
     Active Substance: WARFARIN

REACTIONS (2)
  - Epistaxis [Recovered/Resolved]
  - Drug interaction [Recovered/Resolved]
